FAERS Safety Report 5589093-6 (Version None)
Quarter: 2007Q4

REPORT INFORMATION
  Report Type: 
  Country: None (occurrence: None)
  Receive Date: 20071212
  Receipt Date: 20070817
  Transmission Date: 20080405
  Serious: Yes (Other)
  Sender: FDA-Public Use
  Company Number: USA-2005-0019007

PATIENT
  Age: 65 Year
  Sex: Male

DRUGS (3)
  1. OXYCONTIN [Suspect]
     Indication: PAIN
     Dosage: 40 MG, SEE TEXT
     Dates: start: 20050501, end: 20061101
  2. PEPCID [Concomitant]
  3. MAALOX [Concomitant]

REACTIONS (8)
  - ANXIETY [None]
  - DRUG DEPENDENCE [None]
  - DRUG EFFECT DECREASED [None]
  - DRUG WITHDRAWAL SYNDROME [None]
  - NAUSEA [None]
  - NERVOUSNESS [None]
  - TREMOR [None]
  - UNEVALUABLE EVENT [None]
